FAERS Safety Report 19438298 (Version 1)
Quarter: 2021Q2

REPORT INFORMATION
  Report Type: Spontaneous
  Country: US (occurrence: US)
  Receive Date: 20210619
  Receipt Date: 20210619
  Transmission Date: 20210717
  Serious: Yes (Hospitalization, Other)
  Sender: FDA-Public Use
  Company Number: US-YILING-US-2021-YPL-00058

PATIENT

DRUGS (4)
  1. ACYCLOVIR. [Suspect]
     Active Substance: ACYCLOVIR
     Route: 048
  2. NA [Concomitant]
     Active Substance: SODIUM
     Indication: IMPETIGO
     Route: 048
  3. ACYCLOVIR. [Suspect]
     Active Substance: ACYCLOVIR
     Indication: HERPES ZOSTER
     Route: 042
  4. NA [Concomitant]
     Active Substance: SODIUM
     Indication: IMPETIGO

REACTIONS (1)
  - Neurotoxicity [Recovering/Resolving]
